FAERS Safety Report 12890795 (Version 1)
Quarter: 2016Q4

REPORT INFORMATION
  Report Type: Spontaneous
  Country: US (occurrence: US)
  Receive Date: 20161025
  Receipt Date: 20161025
  Transmission Date: 20170207
  Serious: No
  Sender: FDA-Public Use
  Company Number: None

PATIENT
  Age: 68 Year
  Sex: Female

DRUGS (1)
  1. IBRANCE [Suspect]
     Active Substance: PALBOCICLIB
     Indication: PRODUCT USED FOR UNKNOWN INDICATION
     Dosage: 75MG DAILY FOR 14 DAYS, THEN OFF ORALLY
     Route: 048
     Dates: start: 20150813

REACTIONS (3)
  - Sinus disorder [None]
  - Dizziness [None]
  - Full blood count decreased [None]
